FAERS Safety Report 25286009 (Version 2)
Quarter: 2025Q2

REPORT INFORMATION
  Report Type: Spontaneous
  Country: US (occurrence: US)
  Receive Date: 20250509
  Receipt Date: 20250606
  Transmission Date: 20250717
  Serious: Yes (Other)
  Sender: NOVO NORDISK
  Company Number: US-NOVOPROD-1422113

PATIENT
  Sex: Female

DRUGS (2)
  1. NOVOLOG MIX 70/30 [Suspect]
     Active Substance: INSULIN ASPART
     Indication: Type 2 diabetes mellitus
     Route: 058
     Dates: start: 2010
  2. NOVOLOG [Suspect]
     Active Substance: INSULIN ASPART
     Indication: Type 2 diabetes mellitus
     Dosage: 70 IU, QD (35 IU IN THE MORNING AND 35 IU AT NIGHT)

REACTIONS (4)
  - Blindness unilateral [Not Recovered/Not Resolved]
  - Dry eye [Not Recovered/Not Resolved]
  - Blood glucose decreased [Unknown]
  - Product dispensing error [Unknown]
